FAERS Safety Report 5394335-6 (Version None)
Quarter: 2007Q3

REPORT INFORMATION
  Report Type: 
  Country: None (occurrence: None)
  Receive Date: 20070723
  Receipt Date: 20070524
  Transmission Date: 20080115
  Serious: No
  Sender: FDA-Public Use
  Company Number: A0652859A

PATIENT
  Age: 80 Year
  Sex: Female

DRUGS (11)
  1. AVANDIA [Suspect]
     Dosage: 4MG PER DAY
     Route: 048
     Dates: start: 20060101, end: 20070523
  2. NEXIUM [Concomitant]
  3. TRICOR [Concomitant]
  4. FOSAMAX [Concomitant]
  5. GLIPIZIDE [Concomitant]
  6. OXYBUTYNINE [Concomitant]
  7. RANITIDINE [Concomitant]
  8. METOPROLOL TARTRATE [Concomitant]
  9. DIOVAN [Concomitant]
  10. ADVICOR [Concomitant]
  11. OMEGA 3 [Concomitant]

REACTIONS (2)
  - ASTHENIA [None]
  - DIZZINESS [None]
